FAERS Safety Report 20126855 (Version 1)
Quarter: 2021Q4

REPORT INFORMATION
  Report Type: Spontaneous
  Country: US (occurrence: US)
  Receive Date: 20211129
  Receipt Date: 20211129
  Transmission Date: 20220304
  Serious: Yes (Other)
  Sender: FDA-Public Use
  Company Number: US-PFIZER INC-202101600091

PATIENT
  Age: 60 Year
  Sex: Male

DRUGS (2)
  1. CYTARABINE [Suspect]
     Active Substance: CYTARABINE
     Indication: Myeloid leukaemia
     Dosage: UNK UNK, CYCLIC, (7 DAYS)
  2. DAUNORUBICIN [Suspect]
     Active Substance: DAUNORUBICIN
     Indication: Myeloid leukaemia
     Dosage: UNK UNK, CYCLIC (3 DAYS)

REACTIONS (1)
  - Neutropenic colitis [Recovered/Resolved]
